FAERS Safety Report 25304521 (Version 3)
Quarter: 2025Q2

REPORT INFORMATION
  Report Type: Spontaneous
  Country: JP (occurrence: JP)
  Receive Date: 20250513
  Receipt Date: 20250616
  Transmission Date: 20250717
  Serious: Yes (Hospitalization)
  Sender: AKEBIA THERAPEUTICS
  Company Number: JP-IQVIA-JT2025JP000106

PATIENT
  Age: 59 Year
  Sex: Female
  Weight: 56.5 kg

DRUGS (15)
  1. FERRIC CITRATE ANHYDROUS [Suspect]
     Active Substance: FERRIC CITRATE ANHYDROUS
     Indication: Hyperphosphataemia
     Dosage: 500 MILLIGRAM, TID
     Route: 048
  2. FERRIC CITRATE ANHYDROUS [Suspect]
     Active Substance: FERRIC CITRATE ANHYDROUS
     Dosage: 500 MILLIGRAM, QD
     Route: 048
     Dates: start: 20240418
  3. FERRIC CITRATE ANHYDROUS [Suspect]
     Active Substance: FERRIC CITRATE ANHYDROUS
     Dosage: 500 MILLIGRAM, BID
     Route: 048
     Dates: start: 20240625
  4. ENARODUSTAT [Suspect]
     Active Substance: ENARODUSTAT
     Indication: Nephrogenic anaemia
     Dosage: 4 MILLIGRAM, QD
     Route: 048
     Dates: start: 20240125, end: 20240527
  5. ENARODUSTAT [Suspect]
     Active Substance: ENARODUSTAT
     Dosage: 6 MILLIGRAM, QD
     Route: 048
     Dates: start: 20240528, end: 20240624
  6. ENARODUSTAT [Suspect]
     Active Substance: ENARODUSTAT
     Dosage: 6 MILLIGRAM, QD
     Route: 048
     Dates: start: 20240805, end: 20241011
  7. FEBUXOSTAT [Concomitant]
     Active Substance: FEBUXOSTAT
     Indication: Hyperuricaemia
     Dosage: 10 MILLIGRAM, QD
     Route: 048
     Dates: end: 20240924
  8. EVOCALCET [Concomitant]
     Active Substance: EVOCALCET
     Indication: Hypercalcaemia
     Dosage: 2 MILLIGRAM, QD
     Route: 048
     Dates: end: 20240624
  9. EVOCALCET [Concomitant]
     Active Substance: EVOCALCET
     Dosage: 4 MILLIGRAM, QD
     Route: 048
     Dates: start: 20240625, end: 20241011
  10. ZINC ACETATE [Concomitant]
     Active Substance: ZINC ACETATE
     Indication: Hypozincaemia
     Dosage: 25 MILLIGRAM, QD
     Route: 048
     Dates: end: 20240624
  11. ZINC ACETATE [Concomitant]
     Active Substance: ZINC ACETATE
     Dosage: 25 MILLIGRAM, BID
     Route: 048
     Dates: start: 20240625, end: 20241011
  12. PRAMIPEXOLE [Concomitant]
     Active Substance: PRAMIPEXOLE
     Indication: Restless legs syndrome
     Dosage: 0.375 MILLIGRAM, QD
     Route: 048
     Dates: end: 20240624
  13. PRAMIPEXOLE [Concomitant]
     Active Substance: PRAMIPEXOLE
     Dosage: 0.75 MILLIGRAM, QD
     Route: 048
     Dates: start: 20240625, end: 20241011
  14. ALFACALCIDOL [Concomitant]
     Active Substance: ALFACALCIDOL
     Indication: Product used for unknown indication
     Dosage: 0.5 MICROGRAM, QD
     Route: 048
     Dates: end: 20240417
  15. ALFACALCIDOL [Concomitant]
     Active Substance: ALFACALCIDOL
     Dosage: 0.5 MICROGRAM, QD
     Route: 048
     Dates: start: 20240528, end: 20241011

REACTIONS (1)
  - Peritonitis [Recovering/Resolving]

NARRATIVE: CASE EVENT DATE: 20240625
